FAERS Safety Report 8340321-3 (Version None)
Quarter: 2012Q2

REPORT INFORMATION
  Report Type: 
  Country: None (occurrence: None)
  Receive Date: 20120507
  Receipt Date: 20120507
  Transmission Date: 20120825
  Serious: No
  Sender: FDA-Public Use
  Company Number: None

PATIENT
  Sex: Male
  Weight: 106.59 kg

DRUGS (1)
  1. LYRICA [Suspect]
     Indication: SCIATICA
     Dosage: |STRENGTH: 200 MG|
     Dates: start: 19850719, end: 20100601

REACTIONS (7)
  - TOOTH LOSS [None]
  - NERVOUS SYSTEM DISORDER [None]
  - DRY MOUTH [None]
  - WEIGHT INCREASED [None]
  - IMPAIRED WORK ABILITY [None]
  - ECONOMIC PROBLEM [None]
  - AMNESIA [None]
